FAERS Safety Report 6557568-9 (Version None)
Quarter: 2010Q1

REPORT INFORMATION
  Report Type: 
  Country: None (occurrence: None)
  Receive Date: 20100129
  Receipt Date: 20100126
  Transmission Date: 20100710
  Serious: Yes (Life-Threatening)
  Sender: FDA-Public Use
  Company Number: JP-EISAI INC.-E2020-05747-SPO-JP

PATIENT
  Sex: Female
  Weight: 31.6 kg

DRUGS (5)
  1. ARICEPT [Suspect]
     Route: 048
     Dates: start: 20090604, end: 20090617
  2. ARICEPT [Suspect]
     Route: 048
     Dates: start: 20090618, end: 20090816
  3. ARICEPT [Suspect]
     Dosage: UNKNOWN
     Route: 048
     Dates: start: 20090820, end: 20090826
  4. BENET [Concomitant]
     Indication: OSTEOPOROSIS
     Route: 048
  5. SUNRYTHM [Concomitant]
     Indication: ATRIAL FIBRILLATION
     Route: 048
     Dates: end: 20090817

REACTIONS (2)
  - ELECTROCARDIOGRAM QT PROLONGED [None]
  - VENTRICULAR TACHYCARDIA [None]
